FAERS Safety Report 18805670 (Version 3)
Quarter: 2021Q2

REPORT INFORMATION
  Report Type: Report from Study
  Country: US (occurrence: US)
  Receive Date: 20210128
  Receipt Date: 20210402
  Transmission Date: 20210717
  Serious: Yes (Hospitalization)
  Sender: FDA-Public Use
  Company Number: US-PFIZER INC-2021051738

PATIENT
  Age: 17 Year
  Sex: Male
  Weight: 109.9 kg

DRUGS (7)
  1. CYCLOPHOSPHAMIDE. [Suspect]
     Active Substance: CYCLOPHOSPHAMIDE
     Indication: ACUTE LYMPHOCYTIC LEUKAEMIA
     Dosage: 2300 MG, CYCLIC (DAYS 1 AND 29)
     Route: 042
     Dates: start: 20201028
  2. INCB018424 [Suspect]
     Active Substance: RUXOLITINIB
     Indication: ACUTE LYMPHOCYTIC LEUKAEMIA
     Dosage: 100 MG, 2X/DAY (DAYS 1?14, 29?42), TABLET
     Route: 048
     Dates: start: 20201028, end: 20201228
  3. PEGASPARGASE [Suspect]
     Active Substance: PEGASPARGASE
     Indication: ACUTE LYMPHOCYTIC LEUKAEMIA
     Dosage: 5825 IU (IU/M2), CYCLIC (DAY 15 AND 43 OF CONSOLIDATION)
     Route: 042
     Dates: start: 20201111
  4. VINCRISTINE SULFATE. [Suspect]
     Active Substance: VINCRISTINE SULFATE
     Indication: ACUTE LYMPHOCYTIC LEUKAEMIA
     Dosage: 2 MG, CYCLIC (DAYS 15, 22, 43 AND 50 OF CONSOLIDATION)
     Route: 042
     Dates: start: 20201028, end: 20201228
  5. CYTARABINE. [Suspect]
     Active Substance: CYTARABINE
     Indication: ACUTE LYMPHOCYTIC LEUKAEMIA
     Dosage: 170 MG (MG/M3), CYCLIC (DAYS 1?4, 8?11, 29?32, 36?39 OF CONSOLIDATION)
     Route: 058
     Dates: start: 20201028
  6. MERCAPTOPURINE. [Suspect]
     Active Substance: MERCAPTOPURINE
     Indication: ACUTE LYMPHOCYTIC LEUKAEMIA
     Dosage: 150 MG 4X/WEEK; 125 MG 3X/WEEK, DAYS 1?14, 29?42, TABLET
     Route: 048
     Dates: start: 20201028, end: 20201228
  7. METHOTREXATE SODIUM. [Suspect]
     Active Substance: METHOTREXATE SODIUM
     Indication: ACUTE LYMPHOCYTIC LEUKAEMIA
     Dosage: 15 MG, CYCLIC (DAYS 1, 8 AND 15 OF CONSOLIDATION)
     Route: 037
     Dates: start: 20201028, end: 20201228

REACTIONS (2)
  - Pneumonia [Recovered/Resolved]
  - Sepsis [Recovered/Resolved]

NARRATIVE: CASE EVENT DATE: 20201226
